FAERS Safety Report 8529575-8 (Version None)
Quarter: 2012Q3

REPORT INFORMATION
  Report Type: 
  Country: None (occurrence: None)
  Receive Date: 20120723
  Receipt Date: 20120713
  Transmission Date: 20120928
  Serious: Yes (Other)
  Sender: FDA-Public Use
  Company Number: FI-009507513-1207FIN004634

PATIENT

DRUGS (1)
  1. NASONEX [Suspect]
     Dosage: UNK
     Route: 045
     Dates: start: 20110501

REACTIONS (3)
  - FALL [None]
  - MALAISE [None]
  - LOSS OF CONSCIOUSNESS [None]
